FAERS Safety Report 17893359 (Version 2)
Quarter: 2020Q3

REPORT INFORMATION
  Report Type: Report from Study
  Country: None (occurrence: US)
  Receive Date: 20200615
  Receipt Date: 20200908
  Transmission Date: 20201103
  Serious: Yes (Hospitalization, Other)
  Sender: FDA-Public Use
  Company Number: US-ABBVIE-20K-163-3442603-00

PATIENT
  Sex: Male

DRUGS (2)
  1. HUMIRA [Suspect]
     Active Substance: ADALIMUMAB
     Indication: PSORIATIC ARTHROPATHY
     Route: 058
     Dates: start: 20200621
  2. HUMIRA [Suspect]
     Active Substance: ADALIMUMAB
     Indication: PSORIATIC ARTHROPATHY
     Route: 058
     Dates: start: 2013

REACTIONS (8)
  - Peripheral swelling [Recovering/Resolving]
  - Tinea cruris [Unknown]
  - Fall [Unknown]
  - Musculoskeletal stiffness [Unknown]
  - Weight bearing difficulty [Unknown]
  - Joint stiffness [Unknown]
  - Parkinson^s disease [Unknown]
  - Muscle rupture [Unknown]

NARRATIVE: CASE EVENT DATE: 2020
